FAERS Safety Report 6079230-1 (Version None)
Quarter: 2009Q1

REPORT INFORMATION
  Report Type: 
  Country: None (occurrence: None)
  Receive Date: 20090216
  Receipt Date: 20090205
  Transmission Date: 20090719
  Serious: Yes (Hospitalization, Other)
  Sender: FDA-Public Use
  Company Number: US-AMGEN-US332269

PATIENT
  Sex: Female
  Weight: 58.1 kg

DRUGS (13)
  1. NPLATE [Suspect]
     Indication: IDIOPATHIC THROMBOCYTOPENIC PURPURA
     Dates: start: 20081201
  2. AMBIEN [Concomitant]
  3. VITAMIN B-12 [Concomitant]
  4. PRILOSEC [Concomitant]
  5. CHROMAGEN [Concomitant]
  6. DEXTROPROPOXYPHENE NAPSILATE [Concomitant]
  7. KLOR-CON [Concomitant]
  8. XANAX [Concomitant]
  9. DEMADEX [Concomitant]
  10. LEVOTHYROXINE SODIUM [Concomitant]
  11. LEXAPRO [Concomitant]
  12. KEFLEX [Concomitant]
  13. PREDNISONE [Concomitant]
     Dates: start: 20080101

REACTIONS (6)
  - ASTHENIA [None]
  - CONFUSIONAL STATE [None]
  - INFECTION [None]
  - PLATELET COUNT ABNORMAL [None]
  - WHITE BLOOD CELL COUNT INCREASED [None]
  - WOUND [None]
